FAERS Safety Report 17644306 (Version 1)
Quarter: 2020Q2

REPORT INFORMATION
  Report Type: Spontaneous
  Country: US (occurrence: US)
  Receive Date: 20200408
  Receipt Date: 20200408
  Transmission Date: 20200713
  Serious: No
  Sender: FDA-Public Use
  Company Number: US-PFIZER INC-2020143383

PATIENT
  Age: 59 Year

DRUGS (1)
  1. XANAX [Suspect]
     Active Substance: ALPRAZOLAM
     Dosage: 2 MG, TWICE A DAY

REACTIONS (2)
  - Intentional product misuse [Unknown]
  - Therapeutic response unexpected [Unknown]
